FAERS Safety Report 7228219-5 (Version None)
Quarter: 2011Q1

REPORT INFORMATION
  Report Type: 
  Country: None (occurrence: None)
  Receive Date: 20110112
  Receipt Date: 20110112
  Transmission Date: 20110831
  Serious: Yes (Life-Threatening, Hospitalization)
  Sender: FDA-Public Use
  Company Number: None

PATIENT
  Age: 24 Year
  Sex: Male
  Weight: 63.5 kg

DRUGS (2)
  1. THERAFLU NOVARTIS [Suspect]
     Indication: VIRAL INFECTION
     Dosage: PO
     Route: 048
  2. THERAFLU NOVARTIS [Suspect]
     Indication: MALAISE
     Dosage: PO
     Route: 048

REACTIONS (2)
  - MYOCARDIAL INFARCTION [None]
  - MYOCARDITIS [None]
